FAERS Safety Report 24316151 (Version 1)
Quarter: 2024Q3

REPORT INFORMATION
  Report Type: Spontaneous
  Country: AU (occurrence: AU)
  Receive Date: 20240913
  Receipt Date: 20240913
  Transmission Date: 20241017
  Serious: Yes (Death, Other)
  Sender: RANBAXY
  Company Number: AU-SUN PHARMACEUTICAL INDUSTRIES LTD-2024R1-466040

PATIENT

DRUGS (4)
  1. DOXORUBICIN [Suspect]
     Active Substance: DOXORUBICIN
     Indication: Plasma cell myeloma refractory
     Dosage: UNK (30 MILLIGRAM/SQUARE METRE; INTERVAL: 1 CYCLICAL)
     Route: 042
  2. CARMUSTINE [Suspect]
     Active Substance: CARMUSTINE
     Indication: Plasma cell myeloma refractory
     Dosage: UNK (30 MILLIGRAM/SQUARE METRE; INTERVAL: 1 CYCLICAL)
     Route: 042
  3. CYCLOPHOSPHAMIDE [Suspect]
     Active Substance: CYCLOPHOSPHAMIDE
     Indication: Plasma cell myeloma refractory
     Dosage: UNK (600 MILLIGRAM/SQUARE METRE; INTERVAL: 1 CYCLICAL)
     Route: 042
  4. PREDNISONE [Suspect]
     Active Substance: PREDNISONE
     Indication: Plasma cell myeloma refractory
     Dosage: UNK (60 MILLIGRAM/SQUARE METRE; INTERVAL: 1 CYCLICAL)
     Route: 048

REACTIONS (1)
  - Meningococcal sepsis [Fatal]
